FAERS Safety Report 12285825 (Version 2)
Quarter: 2016Q2

REPORT INFORMATION
  Report Type: Spontaneous
  Country: KZ (occurrence: KZ)
  Receive Date: 20160420
  Receipt Date: 20160427
  Transmission Date: 20160815
  Serious: Yes (Hospitalization)
  Sender: FDA-Public Use
  Company Number: KZ-NOVOPROD-487877

PATIENT
  Sex: Male
  Weight: 3.6 kg

DRUGS (2)
  1. ACTRAPID [Suspect]
     Active Substance: INSULIN HUMAN
     Indication: TYPE 1 DIABETES MELLITUS
     Dosage: 8 U, QD
     Route: 064
     Dates: start: 20150904
  2. ACTRAPID [Suspect]
     Active Substance: INSULIN HUMAN
     Dosage: 10 U, QD
     Route: 064
     Dates: end: 20151222

REACTIONS (4)
  - Foetal exposure during pregnancy [Recovered/Resolved]
  - Premature baby [Unknown]
  - Hypoglycaemia neonatal [Recovered/Resolved]
  - Neonatal hypoxia [Recovered/Resolved]

NARRATIVE: CASE EVENT DATE: 20150904
